FAERS Safety Report 15003563 (Version 1)
Quarter: 2018Q2

REPORT INFORMATION
  Report Type: Spontaneous
  Country: DE (occurrence: DE)
  Receive Date: 20180613
  Receipt Date: 20180613
  Transmission Date: 20180711
  Serious: Yes (Hospitalization)
  Sender: FDA-Public Use
  Company Number: DE-TEVA-2018-DE-903955

PATIENT
  Age: 76 Year
  Sex: Female

DRUGS (8)
  1. TORASEMIDE [Suspect]
     Active Substance: TORSEMIDE
     Dosage: 0.5-0-0-0
     Route: 065
  2. THIAMIN VITAMIN B1 [Concomitant]
     Dosage: 1-0-0-0
     Route: 030
  3. SPIRONOLACTONE. [Suspect]
     Active Substance: SPIRONOLACTONE
     Dosage: 0-1-0-0
     Route: 065
  4. PANTOPRAZOL [Concomitant]
     Active Substance: PANTOPRAZOLE SODIUM
     Dosage: 1-0-0-0
     Route: 065
  5. FOLSAN 5MG [Concomitant]
     Dosage: 1-0-0-0
     Route: 065
  6. MIRTAZAPINE. [Suspect]
     Active Substance: MIRTAZAPINE
     Dosage: 0-0-0-1
     Route: 065
  7. CYANOCOBALAMIN. [Concomitant]
     Active Substance: CYANOCOBALAMIN
     Dosage: NK 1XWOCHE, 1-0-0-0
     Route: 030
  8. NEUROTRAT S FORTE [Concomitant]
     Dosage: 100|100 MG, 1-0-0-0

REACTIONS (4)
  - General physical health deterioration [Unknown]
  - Pyrexia [Unknown]
  - Confusional state [Unknown]
  - Dehydration [Unknown]
